FAERS Safety Report 6644048-5 (Version None)
Quarter: 2010Q1

REPORT INFORMATION
  Report Type: 
  Country: None (occurrence: None)
  Receive Date: 20100322
  Receipt Date: 20100309
  Transmission Date: 20100710
  Serious: No
  Sender: FDA-Public Use
  Company Number: US-B.I. PHARMACEUTICALS,INC./RIDGEFIELD-2010-BP-02830BP

PATIENT
  Sex: Male

DRUGS (10)
  1. SPIRIVA [Suspect]
     Indication: CHRONIC OBSTRUCTIVE PULMONARY DISEASE
     Dosage: 18 MCG
     Route: 055
     Dates: start: 20100301, end: 20100309
  2. COMBIVENT [Concomitant]
     Indication: CHRONIC OBSTRUCTIVE PULMONARY DISEASE
  3. NEXIUM [Concomitant]
     Indication: HIATUS HERNIA
  4. PLAVIX [Concomitant]
     Indication: STENT PLACEMENT
  5. ASPIRIN [Concomitant]
     Indication: PROPHYLAXIS
  6. DONNATAL [Concomitant]
     Indication: IRRITABLE BOWEL SYNDROME
  7. SYNTHROID [Concomitant]
     Indication: HYPOTHYROIDISM
  8. LOPRESSOR [Concomitant]
     Indication: TACHYCARDIA
  9. SIMVASTATIN [Concomitant]
     Indication: BLOOD CHOLESTEROL INCREASED
  10. DIAZEPAM [Concomitant]
     Indication: SLEEP DISORDER

REACTIONS (2)
  - ABDOMINAL PAIN UPPER [None]
  - CONSTIPATION [None]
